FAERS Safety Report 5031212-4 (Version None)
Quarter: 2006Q2

REPORT INFORMATION
  Report Type: 
  Country: None (occurrence: None)
  Receive Date: 20060615
  Receipt Date: 20060602
  Transmission Date: 20061013
  Serious: Yes (Other)
  Sender: FDA-Public Use
  Company Number: 226005

PATIENT
  Sex: Male

DRUGS (5)
  1. MABTHERA (RITUXIMAB) CONC FOR SOLUTION FOR INFUSION [Suspect]
     Indication: B-CELL LYMPHOMA
     Dosage: 375 MG/M2 INTRAVENOUS
     Route: 042
     Dates: start: 20060501
  2. CYCLOPHOSPHAMIDE [Concomitant]
  3. VINCRISTINE [Concomitant]
  4. DOXORUBICIN [Concomitant]
  5. PREDNISOLONE [Concomitant]

REACTIONS (1)
  - GUILLAIN-BARRE SYNDROME [None]
